FAERS Safety Report 8560550-3 (Version None)
Quarter: 2012Q3

REPORT INFORMATION
  Report Type: 
  Country: None (occurrence: None)
  Receive Date: 20120723
  Receipt Date: 20120712
  Transmission Date: 20120928
  Serious: Yes (Life-Threatening, Hospitalization)
  Sender: FDA-Public Use
  Company Number: AUR-APL-2010-02488

PATIENT
  Age: 71 Year
  Sex: Female

DRUGS (4)
  1. FUROSEMIDE [Concomitant]
  2. METFFORMIN HYDROCHLORIDE [Suspect]
     Indication: TYPE 2 DIABETES MELLITUS
     Dosage: 1700 MG/DAY
  3. GLIMEPIRIDE [Concomitant]
  4. OLMESARTAN MEDOXOMIL [Concomitant]

REACTIONS (9)
  - LACTIC ACIDOSIS [None]
  - MENTAL STATUS CHANGES [None]
  - LEFT VENTRICULAR DYSFUNCTION [None]
  - ABSCESS NECK [None]
  - DEPRESSED LEVEL OF CONSCIOUSNESS [None]
  - HAEMODIALYSIS [None]
  - RENAL FAILURE ACUTE [None]
  - DIARRHOEA [None]
  - SOMNOLENCE [None]
